FAERS Safety Report 6594579-1 (Version None)
Quarter: 2010Q1

REPORT INFORMATION
  Report Type: 
  Country: None (occurrence: None)
  Receive Date: 20100222
  Receipt Date: 20100212
  Transmission Date: 20100710
  Serious: No
  Sender: FDA-Public Use
  Company Number: US-B.I. PHARMACEUTICALS,INC./RIDGEFIELD-2010-BP-01036BP

PATIENT
  Age: 90 Year
  Sex: Female
  Weight: 78.93 kg

DRUGS (6)
  1. SPIRIVA [Suspect]
  2. ASMANEX TWISTHALER [Concomitant]
  3. FORADIL [Concomitant]
  4. TORSEMIDE [Concomitant]
  5. METOPROLOL TARTRATE [Concomitant]
  6. COUMADIN [Concomitant]

REACTIONS (4)
  - DYSURIA [None]
  - MICTURITION URGENCY [None]
  - URINARY HESITATION [None]
  - URINE FLOW DECREASED [None]
